FAERS Safety Report 17684167 (Version 2)
Quarter: 2020Q2

REPORT INFORMATION
  Report Type: Spontaneous
  Country: AU (occurrence: AU)
  Receive Date: 20200420
  Receipt Date: 20200512
  Transmission Date: 20200714
  Serious: Yes (Other)
  Sender: FDA-Public Use
  Company Number: AU-ASTRAZENECA-2020SE33858

PATIENT
  Age: 44 Year
  Sex: Male

DRUGS (2)
  1. BYDUREON [Suspect]
     Active Substance: EXENATIDE
     Indication: DIABETES MELLITUS
     Route: 058
     Dates: end: 20200316
  2. BYDUREON [Suspect]
     Active Substance: EXENATIDE
     Indication: DIABETES MELLITUS
     Route: 058
     Dates: start: 20200317

REACTIONS (5)
  - Device difficult to use [Unknown]
  - Product packaging quantity issue [Recovering/Resolving]
  - Diabetes mellitus inadequate control [Unknown]
  - Incorrect dose administered by device [Recovering/Resolving]
  - Drug dose omission by device [Recovering/Resolving]

NARRATIVE: CASE EVENT DATE: 2020
